FAERS Safety Report 16365345 (Version 1)
Quarter: 2019Q2

REPORT INFORMATION
  Report Type: Spontaneous
  Country: US (occurrence: US)
  Receive Date: 20190420
  Receipt Date: 20190420
  Transmission Date: 20190711
  Serious: Yes (Hospitalization)
  Sender: FDA-Public Use
  Company Number: None

PATIENT
  Age: 50 Year
  Sex: Male
  Weight: 101.9 kg

DRUGS (2)
  1. DOXORUBICIN HYDROCHLORIDE. [Suspect]
     Active Substance: DOXORUBICIN HYDROCHLORIDE
     Dates: end: 20161220
  2. IFOSFAMIDE. [Suspect]
     Active Substance: IFOSFAMIDE
     Dates: end: 20161221

REACTIONS (7)
  - Rhinorrhoea [None]
  - Packed red blood cell transfusion [None]
  - Cough [None]
  - Tachycardia [None]
  - Systemic inflammatory response syndrome [None]
  - Hyponatraemia [None]
  - Anaemia [None]

NARRATIVE: CASE EVENT DATE: 20170102
